FAERS Safety Report 20770994 (Version 2)
Quarter: 2022Q2

REPORT INFORMATION
  Report Type: Spontaneous
  Country: BR (occurrence: BR)
  Receive Date: 20220429
  Receipt Date: 20220630
  Transmission Date: 20220720
  Serious: Yes (Other)
  Sender: FDA-Public Use
  Company Number: BR-PFIZER INC-202200629284

PATIENT
  Sex: Female

DRUGS (1)
  1. ALPRAZOLAM [Suspect]
     Active Substance: ALPRAZOLAM
     Dosage: 3 TABLETS A DAY, 1 MG AT THE MORNING AND 2 MG AT NIGHT
     Dates: start: 2005

REACTIONS (6)
  - Diabetes mellitus [Unknown]
  - Movement disorder [Unknown]
  - Insomnia [Unknown]
  - Agitation [Unknown]
  - Anxiety [Unknown]
  - Product use issue [Unknown]
